FAERS Safety Report 16772840 (Version 3)
Quarter: 2019Q4

REPORT INFORMATION
  Report Type: Spontaneous
  Country: CH (occurrence: CH)
  Receive Date: 20190904
  Receipt Date: 20191205
  Transmission Date: 20200122
  Serious: Yes (Hospitalization)
  Sender: FDA-Public Use
  Company Number: CH-ALLERGAN-1935978US

PATIENT

DRUGS (1)
  1. OZURDEX [Suspect]
     Active Substance: DEXAMETHASONE
     Indication: MACULAR OEDEMA
     Dosage: 0.7 MG, SINGLE
     Route: 031

REACTIONS (3)
  - Corneal oedema [Not Recovered/Not Resolved]
  - Corneal disorder [Not Recovered/Not Resolved]
  - Device dislocation [Recovered/Resolved]
